FAERS Safety Report 9752127 (Version 1)
Quarter: 2013Q4

REPORT INFORMATION
  Report Type: Spontaneous
  Country: GB (occurrence: None)
  Receive Date: 20131211
  Receipt Date: 20131211
  Transmission Date: 20140711
  Serious: Yes (Hospitalization)
  Sender: FDA-Public Use
  Company Number: FK201305260

PATIENT
  Age: 15 Year
  Sex: Female

DRUGS (6)
  1. LEUCOVORIN [Suspect]
     Indication: EYE INFECTION TOXOPLASMAL
     Dosage: 15 MG, 2 IN 1 WK
  2. SULFADIAZINE [Suspect]
     Indication: EYE INFECTION TOXOPLASMAL
     Dosage: 1 GM, 4 IN 1 D, ORAL
     Route: 048
  3. PYRIMETHAMINE [Suspect]
     Indication: EYE INFECTION TOXOPLASMAL
     Dosage: 50 MG, 1 D
  4. PREDNISONE [Suspect]
     Indication: EYE INFECTION TOXOPLASMAL
     Dosage: 40MG, 1 IN 1 D
  5. DEXAMETHASONE (DEXAMETHASONE) [Concomitant]
  6. KETOROLAC (KETOROLAC) [Concomitant]

REACTIONS (2)
  - Drug reaction with eosinophilia and systemic symptoms [None]
  - Hepatic necrosis [None]
